FAERS Safety Report 6287607-4 (Version None)
Quarter: 2009Q3

REPORT INFORMATION
  Report Type: 
  Country: None (occurrence: None)
  Receive Date: 20090727
  Receipt Date: 20090727
  Transmission Date: 20100115
  Serious: Yes (Life-Threatening, Hospitalization)
  Sender: FDA-Public Use
  Company Number: None

PATIENT
  Sex: Male
  Weight: 74.8435 kg

DRUGS (2)
  1. DAPSONE [Suspect]
     Indication: PROPHYLAXIS
     Dosage: 100 MG 1/DAY ORAL
     Route: 048
     Dates: start: 20090324, end: 20090502
  2. BACTRIM [Concomitant]

REACTIONS (5)
  - NIGHT SWEATS [None]
  - PRURITUS [None]
  - PYREXIA [None]
  - RASH GENERALISED [None]
  - SWELLING FACE [None]
